FAERS Safety Report 9818116 (Version 1)
Quarter: 2014Q1

REPORT INFORMATION
  Report Type: Spontaneous
  Country: US (occurrence: None)
  Receive Date: 20140113
  Receipt Date: 20140113
  Transmission Date: 20141002
  Serious: No
  Sender: FDA-Public Use
  Company Number: None

PATIENT
  Age: 73 Year
  Sex: Male

DRUGS (1)
  1. NEXAVAR [Suspect]
     Indication: HEPATIC CANCER
     Dosage: NEXAVAR 200 QD PO
     Route: 048
     Dates: start: 20131203, end: 20131224

REACTIONS (1)
  - Oedema peripheral [None]
